FAERS Safety Report 15370699 (Version 4)
Quarter: 2018Q4

REPORT INFORMATION
  Report Type: Spontaneous
  Country: US (occurrence: US)
  Receive Date: 20180911
  Receipt Date: 20181015
  Transmission Date: 20190204
  Serious: Yes (Death, Hospitalization)
  Sender: FDA-Public Use
  Company Number: US-UNITED THERAPEUTICS-UNT-2018-014305

PATIENT
  Age: 55 Year
  Sex: Female
  Weight: 126.98 kg

DRUGS (6)
  1. REMODULIN [Suspect]
     Active Substance: TREPROSTINIL
     Dosage: 0.0075 ?G/KG, CONTINUING AT PUMP RATE OF 0.026 ML PER HOUR
     Route: 058
  2. REMODULIN [Suspect]
     Active Substance: TREPROSTINIL
     Indication: PRODUCT USED FOR UNKNOWN INDICATION
     Dosage: UNK
     Route: 041
     Dates: start: 2018
  3. REMODULIN [Suspect]
     Active Substance: TREPROSTINIL
     Dosage: 0.0085 ?G/KG, CONTINUING
     Route: 058
  4. REMODULIN [Suspect]
     Active Substance: TREPROSTINIL
     Indication: PULMONARY ARTERIAL HYPERTENSION
     Dosage: 0.00125 ?G/KG, CONTINUING
     Route: 058
     Dates: start: 20180806, end: 20180913
  5. MILRINONE                          /00995602/ [Concomitant]
     Indication: HYPOXIA
     Route: 065
  6. REMODULIN [Suspect]
     Active Substance: TREPROSTINIL
     Dosage: 0.00875 ?G/KG, CONTINUING
     Route: 058

REACTIONS (4)
  - Ventilation perfusion mismatch [Fatal]
  - Dyspnoea [Fatal]
  - Diarrhoea [Recovered/Resolved]
  - Vomiting [Recovered/Resolved]

NARRATIVE: CASE EVENT DATE: 20180904
